FAERS Safety Report 9940897 (Version 1)
Quarter: 2014Q1

REPORT INFORMATION
  Report Type: Spontaneous
  Country: CL (occurrence: CL)
  Receive Date: 20140303
  Receipt Date: 20140303
  Transmission Date: 20141002
  Serious: Yes (Other)
  Sender: FDA-Public Use
  Company Number: CL-PFIZER INC-2014058221

PATIENT
  Age: 98 Year
  Sex: Male

DRUGS (5)
  1. XALATAN [Suspect]
     Indication: GLAUCOMA
     Dosage: 1 DROP, 1X/DAY
     Route: 047
     Dates: start: 1999
  2. DOMPERIDONE [Concomitant]
     Dosage: UNK
  3. KITADOL [Concomitant]
  4. FLUICOR [Concomitant]
  5. EUTIROX [Concomitant]

REACTIONS (16)
  - Neoplasm malignant [Unknown]
  - Blindness unilateral [Not Recovered/Not Resolved]
  - Hemiplegia [Not Recovered/Not Resolved]
  - Cerebral thrombosis [Not Recovered/Not Resolved]
  - Cataract [Not Recovered/Not Resolved]
  - Fall [Unknown]
  - Joint injury [Unknown]
  - Gastrointestinal disorder [Not Recovered/Not Resolved]
  - Deafness [Not Recovered/Not Resolved]
  - Speech disorder [Not Recovered/Not Resolved]
  - Senile dementia [Not Recovered/Not Resolved]
  - Bedridden [Not Recovered/Not Resolved]
  - Eye disorder [Not Recovered/Not Resolved]
  - Eye pain [Not Recovered/Not Resolved]
  - Ocular discomfort [Not Recovered/Not Resolved]
  - Dry eye [Not Recovered/Not Resolved]
